FAERS Safety Report 8808674 (Version 3)
Quarter: 2013Q1

REPORT INFORMATION
  Report Type: Spontaneous
  Country: US (occurrence: None)
  Receive Date: 20120920
  Receipt Date: 20130213
  Transmission Date: 20140127
  Serious: Yes (Death, Hospitalization, Other)
  Sender: FDA-Public Use
  Company Number: AUR-APL-2012-03986

PATIENT
  Sex: Male
  Weight: 80.7 kg

DRUGS (5)
  1. CLOPIDOGREL [Suspect]
     Indication: ANTICOAGULANT THERAPY
     Dosage: (1 IN 1 D), UNKNOWN
  2. CRESTOR [Concomitant]
  3. TOPROL XL [Concomitant]
  4. GLUCOPHAGE [Concomitant]
  5. ASA [Concomitant]

REACTIONS (2)
  - Thrombosis in device [None]
  - Drug ineffective [None]
